FAERS Safety Report 5893113-9 (Version None)
Quarter: 2008Q3

REPORT INFORMATION
  Report Type: 
  Country: None (occurrence: None)
  Receive Date: 20080919
  Receipt Date: 20080904
  Transmission Date: 20090109
  Serious: Yes (Hospitalization)
  Sender: FDA-Public Use
  Company Number: GXKR2008GB08471

PATIENT
  Age: 77 Year
  Sex: Male

DRUGS (6)
  1. ACETYLSALICYLIC ACID SRT [Suspect]
     Indication: PROPHYLAXIS
     Dosage: 75 MG, QD, ORAL
     Route: 048
     Dates: end: 20080815
  2. DICLOFENAC SODIUM [Suspect]
     Indication: PAIN
     Dosage: 75 MG, BID
     Dates: end: 20080815
  3. CODEINE PHOSPHATE AND ACETAMINOPHEN [Concomitant]
  4. LANSOPRAZOLE [Concomitant]
  5. ACETAMINOPHEN [Concomitant]
  6. TERBINAFINE HCL [Concomitant]

REACTIONS (1)
  - RENAL FAILURE ACUTE [None]
